FAERS Safety Report 16347599 (Version 1)
Quarter: 2019Q2

REPORT INFORMATION
  Report Type: Spontaneous
  Country: US (occurrence: US)
  Receive Date: 20190523
  Receipt Date: 20190523
  Transmission Date: 20190711
  Serious: No
  Sender: FDA-Public Use
  Company Number: US-SUNOVION-2019SUN002008

PATIENT
  Age: 30 Year
  Sex: Male

DRUGS (3)
  1. LATUDA [Suspect]
     Active Substance: LURASIDONE HYDROCHLORIDE
     Dosage: 20 MG
     Route: 048
     Dates: start: 201807
  2. LATUDA [Suspect]
     Active Substance: LURASIDONE HYDROCHLORIDE
     Dosage: 40 MG, TID (IN THE MORNING, LUNCH AND DINNER)
     Route: 048
  3. AMBIEN [Concomitant]
     Active Substance: ZOLPIDEM TARTRATE
     Dosage: UNK
     Route: 065

REACTIONS (14)
  - Bite [Unknown]
  - Dysphagia [Unknown]
  - Ear infection [Unknown]
  - Dyskinesia [Unknown]
  - Tic [Unknown]
  - Impulsive behaviour [Unknown]
  - Confusional state [Unknown]
  - Cough [Unknown]
  - Off label use [Unknown]
  - Chronic cheek biting [Unknown]
  - Tongue movement disturbance [Unknown]
  - Tongue biting [Unknown]
  - Excessive eye blinking [Unknown]
  - Dystonia [Unknown]
